FAERS Safety Report 8515679-2 (Version None)
Quarter: 2012Q3

REPORT INFORMATION
  Report Type: 
  Country: None (occurrence: None)
  Receive Date: 20120717
  Receipt Date: 20120713
  Transmission Date: 20120928
  Serious: Yes (Death, Other)
  Sender: FDA-Public Use
  Company Number: GXKR2012DE002259

PATIENT
  Sex: Female

DRUGS (1)
  1. FLUOXETINE HCL [Suspect]
     Indication: ANXIETY DISORDER
     Dosage: 30 MG, QD
     Route: 064

REACTIONS (2)
  - FOETAL DEATH [None]
  - FOETAL EXPOSURE DURING PREGNANCY [None]
